FAERS Safety Report 7247906-6 (Version None)
Quarter: 2011Q1

REPORT INFORMATION
  Report Type: 
  Country: None (occurrence: None)
  Receive Date: 20110127
  Receipt Date: 20110120
  Transmission Date: 20110831
  Serious: No
  Sender: FDA-Public Use
  Company Number: US-PFIZER INC-2011015126

PATIENT
  Age: 54 Year
  Sex: Female

DRUGS (1)
  1. PREMPRO [Suspect]
     Indication: MENOPAUSAL SYMPTOMS
     Dosage: 1.5 MG, UNK

REACTIONS (3)
  - BREAST TENDERNESS [None]
  - METRORRHAGIA [None]
  - ANXIETY [None]
